FAERS Safety Report 17262464 (Version 2)
Quarter: 2020Q1

REPORT INFORMATION
  Report Type: Spontaneous
  Country: US (occurrence: US)
  Receive Date: 20200113
  Receipt Date: 20200115
  Transmission Date: 20200409
  Serious: Yes (Other)
  Sender: FDA-Public Use
  Company Number: US-PFIZER INC-2020011561

PATIENT
  Age: 20 Year
  Sex: Female
  Weight: 52.16 kg

DRUGS (1)
  1. DEPO-PROVERA [Suspect]
     Active Substance: MEDROXYPROGESTERONE ACETATE
     Indication: CONTRACEPTION
     Dosage: UNK, (150MG/ML INJECTION INTO RIGHT THIGH, IT IS TO BE GIVEN EVERY 90 DAYS.)
     Dates: start: 201909

REACTIONS (3)
  - Injection site swelling [Recovered/Resolved]
  - Injection site indentation [Not Recovered/Not Resolved]
  - Condition aggravated [Unknown]
